FAERS Safety Report 11405708 (Version 3)
Quarter: 2016Q1

REPORT INFORMATION
  Report Type: Report from Study
  Country: US (occurrence: US)
  Receive Date: 20150821
  Receipt Date: 20160226
  Transmission Date: 20160525
  Serious: Yes (Hospitalization)
  Sender: FDA-Public Use
  Company Number: US-JNJFOC-20150813985

PATIENT
  Age: 63 Year
  Sex: Male

DRUGS (17)
  1. VERAPAMIL [Concomitant]
     Active Substance: VERAPAMIL HYDROCHLORIDE
  2. IMBRUVICA [Suspect]
     Active Substance: IBRUTINIB
     Indication: LYMPHOMA
     Route: 048
     Dates: start: 201506, end: 2015
  3. ALBUTEROL. [Concomitant]
     Active Substance: ALBUTEROL
  4. FLOMAX [Concomitant]
     Active Substance: TAMSULOSIN HYDROCHLORIDE
  5. OMEPRAZOLE. [Concomitant]
     Active Substance: OMEPRAZOLE
  6. COLACE [Concomitant]
     Active Substance: DOCUSATE SODIUM
  7. IMBRUVICA [Suspect]
     Active Substance: IBRUTINIB
     Indication: LYMPHOMA
     Route: 048
     Dates: start: 2015
  8. IRON [Concomitant]
     Active Substance: IRON
     Dates: start: 201511
  9. HCTZ [Concomitant]
     Active Substance: HYDROCHLOROTHIAZIDE
  10. TOPROL XL [Concomitant]
     Active Substance: METOPROLOL SUCCINATE
  11. IMBRUVICA [Suspect]
     Active Substance: IBRUTINIB
     Indication: LYMPHOMA
     Route: 048
  12. CLARITIN [Concomitant]
     Active Substance: LORATADINE
  13. LOVENOX [Concomitant]
     Active Substance: ENOXAPARIN SODIUM
  14. ALLOPURINOL. [Concomitant]
     Active Substance: ALLOPURINOL
  15. FLONASE [Concomitant]
     Active Substance: FLUTICASONE PROPIONATE
  16. COUMADIN [Concomitant]
     Active Substance: WARFARIN SODIUM
  17. IRON [Concomitant]
     Active Substance: IRON

REACTIONS (6)
  - Gastric ulcer haemorrhage [Unknown]
  - Off label use [Unknown]
  - Anaemia [Recovered/Resolved]
  - Onychoclasis [Unknown]
  - Fatigue [Unknown]
  - Gastric polyps [Recovered/Resolved]

NARRATIVE: CASE EVENT DATE: 201506
